FAERS Safety Report 6535069-1 (Version None)
Quarter: 2010Q1

REPORT INFORMATION
  Report Type: 
  Country: None (occurrence: None)
  Receive Date: 20100112
  Receipt Date: 20091231
  Transmission Date: 20100710
  Serious: Yes (Hospitalization, Other)
  Sender: FDA-Public Use
  Company Number: US-MYLANLABS-2009S1021664

PATIENT
  Age: 38 Year
  Sex: Male
  Weight: 72 kg

DRUGS (4)
  1. AMBIEN CR [Suspect]
     Indication: INSOMNIA
     Route: 048
     Dates: start: 20090611, end: 20090801
  2. AMITRIPTYLINE HCL [Suspect]
     Indication: SLEEP DISORDER
     Route: 048
  3. COLESTID [Concomitant]
  4. OXYCODONE [Concomitant]

REACTIONS (13)
  - AGGRESSION [None]
  - AGITATION [None]
  - AMMONIA INCREASED [None]
  - CONFUSIONAL STATE [None]
  - DELIRIUM [None]
  - ENCEPHALOPATHY [None]
  - HALLUCINATION [None]
  - HEAD INJURY [None]
  - PSYCHOTIC DISORDER [None]
  - RESPIRATORY FAILURE [None]
  - SOMNAMBULISM [None]
  - SUICIDAL IDEATION [None]
  - UNRESPONSIVE TO STIMULI [None]
